FAERS Safety Report 11942427 (Version 1)
Quarter: 2016Q1

REPORT INFORMATION
  Report Type: Report from Study
  Country: AT (occurrence: AT)
  Receive Date: 20160125
  Receipt Date: 20160125
  Transmission Date: 20160526
  Serious: Yes (Congenital Anomaly, Other)
  Sender: FDA-Public Use
  Company Number: AT-UCBSA-2016001941

PATIENT

DRUGS (1)
  1. LEVETIRACETAM. [Suspect]
     Active Substance: LEVETIRACETAM
     Indication: EPILEPSY
     Dosage: 2000 MG, DAILY
     Route: 064
     Dates: start: 2011

REACTIONS (2)
  - Foetal exposure during pregnancy [Unknown]
  - Gastrointestinal malformation [Not Recovered/Not Resolved]

NARRATIVE: CASE EVENT DATE: 2011
